FAERS Safety Report 11304539 (Version 1)
Quarter: 2015Q3

REPORT INFORMATION
  Report Type: Spontaneous
  Country: US (occurrence: US)
  Receive Date: 20150723
  Receipt Date: 20150723
  Transmission Date: 20151125
  Serious: No
  Sender: FDA-Public Use
  Company Number: US-JNJFOC-20150106551

PATIENT
  Age: 81 Year
  Sex: Female
  Weight: 66.68 kg

DRUGS (2)
  1. ZYRTEC [Suspect]
     Active Substance: CETIRIZINE HYDROCHLORIDE
     Indication: RHINORRHOEA
     Dosage: 1 TABLET, IN THE MORNING AS NEEDED
     Route: 048
  2. ZYRTEC [Suspect]
     Active Substance: CETIRIZINE HYDROCHLORIDE
     Indication: LACRIMATION INCREASED
     Dosage: 1 TABLET, IN THE MORNING AS NEEDED
     Route: 048

REACTIONS (2)
  - Expired product administered [Unknown]
  - Product container issue [Unknown]
